FAERS Safety Report 7064787-4 (Version None)
Quarter: 2010Q4

REPORT INFORMATION
  Report Type: 
  Country: None (occurrence: None)
  Receive Date: 20101027
  Receipt Date: 20101014
  Transmission Date: 20110411
  Serious: No
  Sender: FDA-Public Use
  Company Number: CA-ELI_LILLY_AND_COMPANY-CA201010003144

PATIENT
  Sex: Male

DRUGS (5)
  1. ZYPREXA [Suspect]
     Indication: PSYCHOTIC DISORDER
     Dosage: 20 MG, QHS
     Route: 048
     Dates: start: 20011001
  2. ZYPREXA [Suspect]
     Dosage: 10 MG, UNKNOWN
     Route: 065
     Dates: start: 20030101
  3. ZYPREXA [Suspect]
     Dosage: 7.5 MG, DAILY (1/D)
     Route: 065
     Dates: start: 20070101
  4. ZOLOFT [Concomitant]
     Dosage: 25 MG, EACH MORNING
     Route: 065
  5. ZOCOR [Concomitant]
     Indication: BLOOD CHOLESTEROL INCREASED
     Dosage: UNK, UNKNOWN
     Route: 065

REACTIONS (7)
  - ALANINE AMINOTRANSFERASE INCREASED [None]
  - GAMMA-GLUTAMYLTRANSFERASE INCREASED [None]
  - HYPERLIPIDAEMIA [None]
  - OVERDOSE [None]
  - RECTAL HAEMORRHAGE [None]
  - TYPE 1 DIABETES MELLITUS [None]
  - WEIGHT INCREASED [None]
